FAERS Safety Report 6893553-5 (Version None)
Quarter: 2010Q3

REPORT INFORMATION
  Report Type: 
  Country: None (occurrence: None)
  Receive Date: 20100731
  Receipt Date: 20091014
  Transmission Date: 20110219
  Serious: No
  Sender: FDA-Public Use
  Company Number: US-PFIZER INC-2009253734

PATIENT
  Sex: Female

DRUGS (9)
  1. GABAPENTIN [Suspect]
     Indication: PRURITUS
     Dosage: 100 MG TO 300 MG, ONCE TO THREE TIMES DAILY
     Dates: start: 20090713, end: 20090825
  2. LANTUS [Suspect]
     Indication: TYPE 2 DIABETES MELLITUS
     Dosage: 10 IU, 1X/DAY
     Route: 058
     Dates: start: 20090701
  3. LANOXIN [Concomitant]
     Dosage: UNK
  4. LASIX [Concomitant]
     Dosage: UNK
  5. PROTONIX [Concomitant]
     Dosage: UNK
  6. K-DUR [Concomitant]
     Dosage: UNK
  7. GLUCOPHAGE [Concomitant]
     Dosage: UNK
  8. ACETYLSALICYLIC ACID [Concomitant]
     Dosage: UNK
  9. INDERAL [Concomitant]
     Dosage: UNK

REACTIONS (1)
  - CONSTIPATION [None]
